FAERS Safety Report 4399263-0 (Version None)
Quarter: 2004Q3

REPORT INFORMATION
  Report Type: 
  Country: None (occurrence: None)
  Receive Date: 20040712
  Receipt Date: 20040624
  Transmission Date: 20050211
  Serious: Yes (Other)
  Sender: FDA-Public Use
  Company Number: 2004-DE-03505GD (0)

PATIENT
  Age: 42 Year
  Sex: Male

DRUGS (4)
  1. PREDNISONE TAB [Suspect]
     Indication: LUPUS NEPHRITIS
     Dosage: 1 MG/KG DAILY
  2. NEVIRAPINE (NEVIRAPINE) [Suspect]
     Indication: HIV INFECTION
  3. INDINAVIR (INDINAVIR) [Suspect]
     Indication: HIV INFECTION
  4. ABACAVIR (ABACAVIR) [Suspect]
     Indication: HIV INFECTION

REACTIONS (24)
  - ALCOHOL WITHDRAWAL SYNDROME [None]
  - AZOTAEMIA [None]
  - BACTERAEMIA [None]
  - CELLULITIS [None]
  - DRUG INEFFECTIVE [None]
  - DRUG INTOLERANCE [None]
  - DYSPNOEA [None]
  - GLOMERULONEPHRITIS [None]
  - HAEMATOCRIT DECREASED [None]
  - HAEMODIALYSIS [None]
  - LUNG INFILTRATION [None]
  - OEDEMA PERIPHERAL [None]
  - ORTHOSTATIC HYPOTENSION [None]
  - PANCREATITIS [None]
  - PLATELET COUNT DECREASED [None]
  - PLEURAL EFFUSION [None]
  - PNEUMONIA PNEUMOCOCCAL [None]
  - PROTEIN URINE PRESENT [None]
  - PYREXIA [None]
  - RED BLOOD CELLS URINE [None]
  - RENAL FAILURE [None]
  - SYNCOPE [None]
  - VIRAL LOAD INCREASED [None]
  - WHITE BLOOD CELLS URINE POSITIVE [None]
